FAERS Safety Report 17241556 (Version 1)
Quarter: 2020Q1

REPORT INFORMATION
  Report Type: Spontaneous
  Country: US (occurrence: US)
  Receive Date: 20200107
  Receipt Date: 20200107
  Transmission Date: 20200409
  Serious: No
  Sender: FDA-Public Use
  Company Number: US-MYLANLABS-2019M1127882

PATIENT
  Sex: Male
  Weight: 54 kg

DRUGS (9)
  1. SYMBICORT [Concomitant]
     Active Substance: BUDESONIDE\FORMOTEROL FUMARATE DIHYDRATE
     Indication: CHRONIC OBSTRUCTIVE PULMONARY DISEASE
     Dosage: 160/4.5 2 PUFFS, QD
  2. FENTANYL TRANSDERMAL SYSTEM [Suspect]
     Active Substance: FENTANYL
     Indication: INTERVERTEBRAL DISC PROTRUSION
     Dosage: 1 DOSAGE FORM, Q3D
     Route: 062
  3. FENTANYL TRANSDERMAL SYSTEM [Suspect]
     Active Substance: FENTANYL
     Dosage: 50 MICROGRAM
     Route: 062
  4. OXYCODONE [Suspect]
     Active Substance: OXYCODONE
     Indication: INTERVERTEBRAL DISC PROTRUSION
     Dosage: 10 MILLIGRAM, PRN(ONE 4 TIMES A DAY IF NEEDED)
     Route: 048
  5. RIFAMPIN. [Concomitant]
     Active Substance: RIFAMPIN
     Indication: LATENT TUBERCULOSIS
     Dosage: 300 MILLIGRAM, BID
  6. FENTANYL TRANSDERMAL SYSTEM [Suspect]
     Active Substance: FENTANYL
     Dosage: 100 MICROGRAM
     Route: 062
  7. OXYCODONE [Suspect]
     Active Substance: OXYCODONE
     Indication: NERVE COMPRESSION
     Dosage: 15 MILLIGRAM, PRN
     Route: 048
  8. FENTANYL TRANSDERMAL SYSTEM [Suspect]
     Active Substance: FENTANYL
     Dosage: 75 MICROGRAM, Q3D
     Route: 062
  9. FENTANYL TRANSDERMAL SYSTEM [Suspect]
     Active Substance: FENTANYL
     Indication: NERVE COMPRESSION
     Dosage: 25 MICROGRAM
     Route: 062

REACTIONS (6)
  - Therapeutic product effect incomplete [Unknown]
  - Withdrawal syndrome [Unknown]
  - Paraesthesia [Unknown]
  - Cough [Unknown]
  - Retching [Unknown]
  - Restlessness [Unknown]
